FAERS Safety Report 7754268-4 (Version None)
Quarter: 2011Q3

REPORT INFORMATION
  Report Type: 
  Country: None (occurrence: None)
  Receive Date: 20110825
  Receipt Date: 20110725
  Transmission Date: 20111222
  Serious: No
  Sender: FDA-Public Use
  Company Number: 332630

PATIENT
  Age: 52 Year
  Sex: Female

DRUGS (3)
  1. GLIMEPIRIDE [Concomitant]
  2. METFORMIN HCL [Concomitant]
  3. VICTOZA [Suspect]
     Indication: TYPE 2 DIABETES MELLITUS
     Dosage: SUBCUTANEOUS
     Route: 058
     Dates: start: 20110608

REACTIONS (2)
  - DECREASED APPETITE [None]
  - BLOOD GLUCOSE FLUCTUATION [None]
